FAERS Safety Report 9838824 (Version 5)
Quarter: 2018Q4

REPORT INFORMATION
  Report Type: Report from Study
  Country: US (occurrence: US)
  Receive Date: 20140123
  Receipt Date: 20181220
  Transmission Date: 20190205
  Serious: Yes (Other)
  Sender: FDA-Public Use
  Company Number: US-TEVA-457893USA

PATIENT
  Age: 35 Year
  Sex: Female

DRUGS (4)
  1. TRI-SPRINTEC [Concomitant]
     Active Substance: ETHINYL ESTRADIOL\NORGESTIMATE
  2. CLARAVIS [Suspect]
     Active Substance: ISOTRETINOIN
     Dosage: 80 MILLIGRAM DAILY;
     Route: 048
     Dates: start: 20130625, end: 20131217
  3. CLARAVIS [Suspect]
     Active Substance: ISOTRETINOIN
     Dosage: 80 MILLIGRAM DAILY;
     Route: 048
     Dates: start: 20110207, end: 2011
  4. CLARAVIS [Suspect]
     Active Substance: ISOTRETINOIN
     Dosage: 80 MILLIGRAM DAILY;
     Route: 048
     Dates: start: 20120405, end: 2012

REACTIONS (2)
  - Maternal exposure during pregnancy [Unknown]
  - Unintended pregnancy [Recovered/Resolved]

NARRATIVE: CASE EVENT DATE: 20131210
